FAERS Safety Report 20212786 (Version 1)
Quarter: 2021Q4

REPORT INFORMATION
  Report Type: Spontaneous
  Country: CN (occurrence: CN)
  Receive Date: 20211221
  Receipt Date: 20211221
  Transmission Date: 20220304
  Serious: No
  Sender: FDA-Public Use
  Company Number: CN-ELI_LILLY_AND_COMPANY-CN202112007364

PATIENT
  Sex: Male

DRUGS (1)
  1. CIALIS [Suspect]
     Active Substance: TADALAFIL
     Indication: Erectile dysfunction
     Dosage: 5 MG, UNKNOWN
     Route: 048
     Dates: start: 20211210

REACTIONS (2)
  - Vision blurred [Unknown]
  - Flushing [Unknown]

NARRATIVE: CASE EVENT DATE: 20211210
